FAERS Safety Report 6328040-6 (Version None)
Quarter: 2009Q3

REPORT INFORMATION
  Report Type: 
  Country: None (occurrence: None)
  Receive Date: 20090825
  Receipt Date: 20081110
  Transmission Date: 20100115
  Serious: No
  Sender: FDA-Public Use
  Company Number: US-ABBOTT-08P-163-0487326-00

PATIENT
  Sex: Female
  Weight: 113.5 kg

DRUGS (14)
  1. SYNTHROID [Suspect]
     Indication: AUTOIMMUNE THYROIDITIS
     Route: 048
     Dates: start: 20061201, end: 20071101
  2. SYNTHROID [Suspect]
     Route: 048
     Dates: start: 20071101
  3. SYNTHROID [Suspect]
     Route: 048
  4. SYNTHROID [Suspect]
     Dates: start: 20080901
  5. PREMERIN [Concomitant]
     Indication: HORMONE REPLACEMENT THERAPY
     Route: 048
  6. PIROXICAM [Concomitant]
     Indication: ARTHRITIS
     Route: 048
  7. OMEPRAZOLE [Concomitant]
     Indication: GASTRIC DISORDER
     Dosage: QD
     Route: 048
  8. LEKOVIT CA [Concomitant]
     Indication: DRUG USE FOR UNKNOWN INDICATION
     Route: 048
  9. FOLGARD OS [Concomitant]
     Indication: DRUG USE FOR UNKNOWN INDICATION
     Route: 048
  10. ASCORBIC ACID [Concomitant]
     Indication: DRUG USE FOR UNKNOWN INDICATION
     Route: 048
  11. CENTRUM SILVER [Concomitant]
     Indication: VITAMIN SUPPLEMENTATION
  12. METOLAZONE [Concomitant]
     Indication: DIURETIC THERAPY
     Dosage: PRN
     Route: 048
  13. CLONAZEPINE [Concomitant]
     Indication: ANXIETY
     Dosage: PRN
     Route: 048
  14. ADVIL [Concomitant]
     Indication: PAIN
     Dosage: 3 AT A TIME AS NEEDED
     Route: 048

REACTIONS (4)
  - DIZZINESS [None]
  - HEADACHE [None]
  - HYPERTENSION [None]
  - WEIGHT INCREASED [None]
